FAERS Safety Report 22354710 (Version 1)
Quarter: 2023Q2

REPORT INFORMATION
  Report Type: Spontaneous
  Country: US (occurrence: US)
  Receive Date: 20230523
  Receipt Date: 20230523
  Transmission Date: 20230721
  Serious: No
  Sender: FDA-Public Use
  Company Number: US-SANOFI-01623979

PATIENT
  Sex: Female

DRUGS (1)
  1. LANTUS SOLOSTAR [Suspect]
     Active Substance: INSULIN GLARGINE
     Dosage: 34 UNITS

REACTIONS (1)
  - Injection site pain [Unknown]
